FAERS Safety Report 7669043-9 (Version None)
Quarter: 2011Q3

REPORT INFORMATION
  Report Type: 
  Country: None (occurrence: None)
  Receive Date: 20110808
  Receipt Date: 20110801
  Transmission Date: 20111222
  Serious: Yes (Other)
  Sender: FDA-Public Use
  Company Number: US-BAYER-2011-040964

PATIENT
  Sex: Female

DRUGS (1)
  1. MIRENA [Suspect]
     Dosage: 20 ?G, CONT
     Route: 015
     Dates: start: 20110303, end: 20110518

REACTIONS (8)
  - ABDOMINAL PAIN [None]
  - PELVIC PAIN [None]
  - MIGRAINE [None]
  - BACK PAIN [None]
  - HEADACHE [None]
  - VAGINAL HAEMORRHAGE [None]
  - OVARIAN CYST [None]
  - GASTROINTESTINAL PAIN [None]
